FAERS Safety Report 22653305 (Version 1)
Quarter: 2023Q2

REPORT INFORMATION
  Report Type: Spontaneous
  Country: BA (occurrence: BA)
  Receive Date: 20230629
  Receipt Date: 20230629
  Transmission Date: 20230722
  Serious: Yes (Other)
  Sender: FDA-Public Use
  Company Number: BA-BAYER-2023A085565

PATIENT
  Sex: Male

DRUGS (12)
  1. EYLEA [Suspect]
     Active Substance: AFLIBERCEPT
     Dosage: 2 MG,RIGHT EYE, SOLUTION FOR INJECTION, STRENGTH: 40 MG/ML
     Dates: start: 20210217, end: 20210217
  2. EYLEA [Suspect]
     Active Substance: AFLIBERCEPT
     Dosage: 2 MG,LEFT EYE, SOLUTION FOR INJECTION, STRENGTH: 40 MG/ML
     Dates: start: 20210311, end: 20210311
  3. EYLEA [Suspect]
     Active Substance: AFLIBERCEPT
     Dosage: 2 MG,RIGHT EYE, SOLUTION FOR INJECTION, STRENGTH: 40 MG/ML
     Dates: start: 20210319, end: 20210319
  4. EYLEA [Suspect]
     Active Substance: AFLIBERCEPT
     Dosage: 2 MG,LEFT EYE, SOLUTION FOR INJECTION, STRENGTH: 40 MG/ML
     Dates: start: 20210604, end: 20210604
  5. EYLEA [Suspect]
     Active Substance: AFLIBERCEPT
     Dosage: 2 MG,LEFT EYE, SOLUTION FOR INJECTION, STRENGTH: 40 MG/ML
     Dates: start: 20210708, end: 20210708
  6. EYLEA [Suspect]
     Active Substance: AFLIBERCEPT
     Dosage: 2 MG,RIGHT EYE, SOLUTION FOR INJECTION, STRENGTH: 40 MG/ML
     Dates: start: 20210719, end: 20210719
  7. EYLEA [Suspect]
     Active Substance: AFLIBERCEPT
     Dosage: 2 MG,LEFT EYE, SOLUTION FOR INJECTION, STRENGTH: 40 MG/ML
     Dates: start: 20210907, end: 20210907
  8. EYLEA [Suspect]
     Active Substance: AFLIBERCEPT
     Dosage: 2 MG,RIGHT EYE, SOLUTION FOR INJECTION, STRENGTH: 40 MG/ML
     Dates: start: 20211207, end: 20211207
  9. EYLEA [Suspect]
     Active Substance: AFLIBERCEPT
     Dosage: 2 MG,LEFT EYE, SOLUTION FOR INJECTION, STRENGTH: 40 MG/ML
     Dates: start: 20220331, end: 20220331
  10. EYLEA [Suspect]
     Active Substance: AFLIBERCEPT
     Dosage: 2 MG,RIGHTT EYE, SOLUTION FOR INJECTION, STRENGTH: 40 MG/ML
     Dates: start: 20220505, end: 20220505
  11. EYLEA [Suspect]
     Active Substance: AFLIBERCEPT
     Dosage: 2 MG,LEFT EYE, SOLUTION FOR INJECTION, STRENGTH: 40 MG/ML
     Dates: start: 20220609, end: 20220609
  12. EYLEA [Suspect]
     Active Substance: AFLIBERCEPT
     Dosage: 2 MG,RIGHT EYE, SOLUTION FOR INJECTION, STRENGTH: 40 MG/ML
     Dates: start: 20220714, end: 20220714

REACTIONS (2)
  - Retinal thickening [Unknown]
  - Diabetic retinopathy [Unknown]

NARRATIVE: CASE EVENT DATE: 20230314
